FAERS Safety Report 6185248-0 (Version None)
Quarter: 2009Q2

REPORT INFORMATION
  Report Type: 
  Country: None (occurrence: None)
  Receive Date: 20090511
  Receipt Date: 20090505
  Transmission Date: 20091009
  Serious: Yes (Hospitalization)
  Sender: FDA-Public Use
  Company Number: US-BIOGENIDEC-2009BI013561

PATIENT
  Age: 59 Year
  Sex: Female

DRUGS (3)
  1. AVONEX [Suspect]
     Indication: MULTIPLE SCLEROSIS
     Route: 030
     Dates: end: 20061201
  2. AVONEX [Suspect]
     Route: 030
     Dates: start: 20080201, end: 20081001
  3. AVONEX [Suspect]
     Route: 030
     Dates: start: 20090321

REACTIONS (9)
  - DIZZINESS [None]
  - DYSARTHRIA [None]
  - EPILEPSY [None]
  - FALL [None]
  - HYPOAESTHESIA [None]
  - MULTIPLE SCLEROSIS [None]
  - MULTIPLE SCLEROSIS RELAPSE [None]
  - PARALYSIS [None]
  - SWELLING [None]
